FAERS Safety Report 23339105 (Version 5)
Quarter: 2024Q2

REPORT INFORMATION
  Report Type: Report from Study
  Country: IN (occurrence: IN)
  Receive Date: 20231226
  Receipt Date: 20240417
  Transmission Date: 20240716
  Serious: Yes (Death, Other)
  Sender: FDA-Public Use
  Company Number: US-AMGEN-USASP2023227020

PATIENT
  Age: 6 Year
  Sex: Male

DRUGS (8)
  1. BLINATUMOMAB [Suspect]
     Active Substance: BLINATUMOMAB
     Indication: B precursor type acute leukaemia
     Dosage: 15 MILLIGRAM/SQ. METER, QD/ TOLERATED IT WELL/ INFUSION
     Route: 065
     Dates: start: 20231207, end: 20231218
  2. BLINATUMOMAB [Suspect]
     Active Substance: BLINATUMOMAB
     Dosage: 5 MILLIGRAM/SQ. METER, QD FOR 7 DAYS
     Route: 065
     Dates: start: 20240127, end: 20240202
  3. BLINATUMOMAB [Suspect]
     Active Substance: BLINATUMOMAB
     Dosage: 5MCG/M2/DAY FOR 7 DAYS INITIALY AND THEN INCREASED TO 15 MCG/M2/DAY SUBSEQUENTLY
     Route: 065
     Dates: start: 20240203, end: 202402
  4. BLINATUMOMAB [Suspect]
     Active Substance: BLINATUMOMAB
     Dosage: 15 MILLIGRAM/SQ. METER, QD/ SECOND CYCLE
     Route: 065
     Dates: start: 20240206
  5. LABETALOL [Concomitant]
     Active Substance: LABETALOL\LABETALOL HYDROCHLORIDE
     Indication: Hypertension
     Dosage: UNK
     Route: 042
     Dates: start: 20240221
  6. PRAZOSIN [Concomitant]
     Active Substance: PRAZOSIN
     Indication: Hypertension
     Dosage: UNK
     Route: 048
     Dates: start: 20240223
  7. ENALAPRIL [Concomitant]
     Active Substance: ENALAPRIL
     Indication: Hypertension
     Dosage: UNK
     Route: 048
     Dates: start: 20240221
  8. CLONIDINE [Concomitant]
     Active Substance: CLONIDINE
     Indication: Hypertension
     Dosage: UNK
     Route: 048
     Dates: start: 20240223

REACTIONS (4)
  - Inappropriate antidiuretic hormone secretion [Unknown]
  - Cytokine release syndrome [Recovered/Resolved]
  - Subacute sclerosing panencephalitis [Fatal]
  - Measles [Not Recovered/Not Resolved]

NARRATIVE: CASE EVENT DATE: 20231201
